FAERS Safety Report 5956383-4 (Version None)
Quarter: 2008Q4

REPORT INFORMATION
  Report Type: 
  Country: None (occurrence: None)
  Receive Date: 20081112
  Receipt Date: 20081028
  Transmission Date: 20090506
  Serious: Yes (Other)
  Sender: FDA-Public Use
  Company Number: FEI2008-1792

PATIENT
  Age: 19 Year
  Sex: Female
  Weight: 66.2252 kg

DRUGS (1)
  1. PARAGARD T 380A [Suspect]
     Indication: CONTRACEPTION
     Dosage: INTRA-UTERINE
     Route: 015
     Dates: start: 20080422

REACTIONS (3)
  - HEPATIC STEATOSIS [None]
  - IUCD COMPLICATION [None]
  - VAGINAL HAEMORRHAGE [None]
